FAERS Safety Report 23928712 (Version 2)
Quarter: 2025Q3

REPORT INFORMATION
  Report Type: Spontaneous
  Country: US (occurrence: US)
  Receive Date: 20240531
  Receipt Date: 20250703
  Transmission Date: 20251020
  Serious: No
  Sender: RADIUS PHARM
  Company Number: US-RADIUS HEALTH INC.-2024US001231

PATIENT
  Age: 51 Year
  Sex: Female

DRUGS (3)
  1. TYMLOS [Suspect]
     Active Substance: ABALOPARATIDE
     Indication: Senile osteoporosis
     Route: 058
     Dates: start: 20240213
  2. CALCIUM\VITAMIN D [Concomitant]
     Active Substance: CALCIUM\VITAMIN D
     Indication: Supplementation therapy
  3. ASCORBIC ACID\CALCIUM CARBONATE [Concomitant]
     Active Substance: ASCORBIC ACID\CALCIUM CARBONATE
     Indication: Supplementation therapy

REACTIONS (11)
  - Constipation [Recovering/Resolving]
  - Abdominal pain upper [Not Recovered/Not Resolved]
  - Headache [Not Recovered/Not Resolved]
  - Neck pain [Unknown]
  - Abdominal distension [Recovering/Resolving]
  - Loss of personal independence in daily activities [Unknown]
  - Bone pain [Unknown]
  - Dizziness [Unknown]
  - Arthralgia [Unknown]
  - Heart rate increased [Not Recovered/Not Resolved]
  - Product dose omission issue [Unknown]

NARRATIVE: CASE EVENT DATE: 20240201
